FAERS Safety Report 8160838-4 (Version None)
Quarter: 2012Q1

REPORT INFORMATION
  Report Type: 
  Country: None (occurrence: None)
  Receive Date: 20120223
  Receipt Date: 20120217
  Transmission Date: 20120608
  Serious: Yes (Death, Life-Threatening, Hospitalization)
  Sender: FDA-Public Use
  Company Number: PHHO2011CZ17458

PATIENT
  Sex: Male
  Weight: 83 kg

DRUGS (5)
  1. AFINITOR [Suspect]
     Indication: LIVER TRANSPLANT
     Dosage: 0.5 MG, BID
     Route: 048
     Dates: start: 20110712
  2. AFINITOR [Suspect]
     Dosage: 0.5 MG, QD
     Route: 048
     Dates: start: 20111101, end: 20111107
  3. TACROLIMUS [Suspect]
     Indication: LIVER TRANSPLANT
     Dosage: 0.5 MG, BID
     Route: 048
     Dates: start: 20110712
  4. TACROLIMUS [Suspect]
     Dosage: 0.5 MG, QD
     Route: 048
     Dates: start: 20111101, end: 20111107
  5. PREDNISOLONE [Concomitant]
     Indication: LIVER TRANSPLANT
     Dosage: 10 MG, QD
     Route: 048
     Dates: start: 20100215

REACTIONS (9)
  - INFECTION [None]
  - SEPTIC SHOCK [None]
  - LUNG INFECTION [None]
  - PNEUMONIA KLEBSIELLA [None]
  - HEPATIC LESION [None]
  - PNEUMOCYSTIS JIROVECI PNEUMONIA [None]
  - COMPLICATIONS OF TRANSPLANTED LIVER [None]
  - DISEASE PROGRESSION [None]
  - RESPIRATORY FAILURE [None]
